FAERS Safety Report 6823800-7 (Version None)
Quarter: 2010Q3

REPORT INFORMATION
  Report Type: 
  Country: None (occurrence: None)
  Receive Date: 20100708
  Receipt Date: 20060906
  Transmission Date: 20110219
  Serious: No
  Sender: FDA-Public Use
  Company Number: US-PFIZER INC-2006109758

PATIENT
  Sex: Female
  Weight: 51.26 kg

DRUGS (2)
  1. VARENICLINE [Suspect]
     Indication: EX-TOBACCO USER
     Dates: start: 20060829
  2. ANTIHYPERTENSIVES [Concomitant]

REACTIONS (1)
  - ASTHENIA [None]
